FAERS Safety Report 15488913 (Version 1)
Quarter: 2018Q4

REPORT INFORMATION
  Report Type: Spontaneous
  Country: US (occurrence: US)
  Receive Date: 20181011
  Receipt Date: 20181011
  Transmission Date: 20190205
  Serious: No
  Sender: FDA-Public Use
  Company Number: US-PFIZER INC-2018406236

PATIENT
  Age: 70 Year
  Sex: Female

DRUGS (1)
  1. LIOTHYRONINE SODIUM. [Suspect]
     Active Substance: LIOTHYRONINE SODIUM
     Dosage: 37.5 UG, UNK (25 UG TABLET, 1.5 TABLETS)
     Dates: start: 2018

REACTIONS (1)
  - Alopecia [Unknown]
